FAERS Safety Report 7245514-4 (Version None)
Quarter: 2011Q1

REPORT INFORMATION
  Report Type: 
  Country: None (occurrence: None)
  Receive Date: 20110126
  Receipt Date: 20110117
  Transmission Date: 20110831
  Serious: Yes (Hospitalization)
  Sender: FDA-Public Use
  Company Number: CA-ASTRAZENECA-2011SE03004

PATIENT
  Age: 77 Year
  Sex: Male

DRUGS (4)
  1. CRESTOR [Suspect]
     Route: 048
     Dates: start: 20100901
  2. ASPIRIN [Concomitant]
     Route: 048
  3. CLOPIDOGREL [Concomitant]
     Route: 048
     Dates: start: 20100901
  4. LEVOTHYROXINE SODIUM [Concomitant]
     Dosage: ONCE DAILY
     Route: 048

REACTIONS (3)
  - EYE SWELLING [None]
  - INSOMNIA [None]
  - MYOCARDIAL INFARCTION [None]
